FAERS Safety Report 6189879-3 (Version None)
Quarter: 2009Q2

REPORT INFORMATION
  Report Type: 
  Country: None (occurrence: None)
  Receive Date: 20090514
  Receipt Date: 20090506
  Transmission Date: 20091009
  Serious: Yes (Hospitalization)
  Sender: FDA-Public Use
  Company Number: CA-CELGENEUS-028-21880-09050396

PATIENT
  Sex: Male

DRUGS (2)
  1. REVLIMID [Suspect]
     Indication: DRUG USE FOR UNKNOWN INDICATION
     Route: 048
     Dates: start: 20081028
  2. ANTIBIOTICS [Concomitant]
     Route: 065
     Dates: start: 20090101

REACTIONS (1)
  - VIRAL INFECTION [None]
